FAERS Safety Report 6384060-7 (Version None)
Quarter: 2009Q3

REPORT INFORMATION
  Report Type: 
  Country: None (occurrence: None)
  Receive Date: 20090928
  Receipt Date: 20090923
  Transmission Date: 20100115
  Serious: Yes (Death)
  Sender: FDA-Public Use
  Company Number: 2009SP025875

PATIENT
  Age: 51 Year
  Sex: Male
  Weight: 104.3 kg

DRUGS (8)
  1. TEMOZOLOMIDE [Suspect]
     Indication: GLIOMA
     Dosage: 75 MG/M2; QD; PO
     Route: 048
     Dates: start: 20090417, end: 20090908
  2. DILANTIN [Concomitant]
  3. VALPROATE SODIUM [Concomitant]
  4. EFFEXOR [Concomitant]
  5. OXYCONTIN [Concomitant]
  6. ACETAMINOPHEN [Concomitant]
  7. ENDONE [Concomitant]
  8. SERETIDE [Concomitant]

REACTIONS (1)
  - CORONARY ARTERY THROMBOSIS [None]
